FAERS Safety Report 20119107 (Version 1)
Quarter: 2021Q4

REPORT INFORMATION
  Report Type: Spontaneous
  Country: ES (occurrence: ES)
  Receive Date: 20211126
  Receipt Date: 20211126
  Transmission Date: 20220303
  Serious: Yes (Other)
  Sender: FDA-Public Use
  Company Number: None

PATIENT
  Age: 84 Year
  Sex: Female

DRUGS (4)
  1. ATORVASTATIN [Suspect]
     Active Substance: ATORVASTATIN
     Indication: Hypercholesterolaemia
     Dosage: 10.0 MG C/24 H
     Route: 048
     Dates: start: 20200619, end: 20200628
  2. INSULATARD                         /00646002/ [Concomitant]
     Indication: Diabetes mellitus
     Dosage: UI IRREGULAR
     Route: 058
     Dates: start: 20090811
  3. CHOLECALCIFEROL [Concomitant]
     Active Substance: CHOLECALCIFEROL
     Indication: Spinal osteoarthritis
     Dosage: 25000.0 UI C/72 HORAS
     Route: 048
     Dates: start: 20200515
  4. LEVOTHYROXINE SODIUM [Concomitant]
     Active Substance: LEVOTHYROXINE SODIUM
     Indication: Hypothyroidism
     Dosage: 50.0 MCG A-DE
     Route: 048
     Dates: start: 20170105

REACTIONS (1)
  - Jaundice cholestatic [Recovered/Resolved]

NARRATIVE: CASE EVENT DATE: 20200626
